FAERS Safety Report 6345819-5 (Version None)
Quarter: 2009Q3

REPORT INFORMATION
  Report Type: 
  Country: None (occurrence: None)
  Receive Date: 20090909
  Receipt Date: 20090903
  Transmission Date: 20100115
  Serious: Yes (Hospitalization)
  Sender: FDA-Public Use
  Company Number: A0707202A

PATIENT
  Sex: Female

DRUGS (3)
  1. ZINNAT [Suspect]
     Indication: SINUSITIS
     Dosage: 500MG UNKNOWN
     Route: 048
  2. TYLENOL (CAPLET) [Concomitant]
  3. MOTILIUM [Concomitant]

REACTIONS (8)
  - DIARRHOEA [None]
  - DIZZINESS [None]
  - DYSPNOEA [None]
  - FATIGUE [None]
  - HEADACHE [None]
  - NAUSEA [None]
  - THROAT TIGHTNESS [None]
  - VOMITING [None]
